FAERS Safety Report 8891102 (Version 2)
Quarter: 2013Q4

REPORT INFORMATION
  Report Type: Spontaneous
  Country: GB (occurrence: GB)
  Receive Date: 20121107
  Receipt Date: 20131003
  Transmission Date: 20140711
  Serious: Yes (Other)
  Sender: FDA-Public Use
  Company Number: GB-TEVA-367092ISR

PATIENT
  Age: 72 Year
  Sex: Male
  Weight: 89 kg

DRUGS (7)
  1. SIMVASTATIN [Suspect]
     Indication: BLOOD CHOLESTEROL INCREASED
     Dosage: 40 MILLIGRAM DAILY; TAKEN AT NIGHT
     Route: 048
     Dates: start: 20120904
  2. CETIRIZINE [Concomitant]
     Indication: CARDIAC FAILURE
     Dosage: ONGOING
     Route: 048
     Dates: start: 2000
  3. FUROSEMIDE [Concomitant]
     Indication: OEDEMA
     Dosage: ONGOING
     Route: 048
     Dates: start: 20100527
  4. RAMIPRIL [Concomitant]
     Indication: OEDEMA
     Dosage: ONGOING
     Route: 048
     Dates: start: 20100701
  5. ASPIRIN [Concomitant]
     Indication: PROPHYLAXIS
     Dosage: ONGOING
     Route: 048
     Dates: start: 20050907
  6. TRAMADOL [Concomitant]
     Indication: PAIN
     Dosage: 150 MILLIGRAM DAILY; ONGOING
     Route: 048
     Dates: start: 20120913
  7. PARACETAMOL [Concomitant]
     Indication: PAIN
     Dosage: 4 GRAM DAILY; ONGOING
     Route: 048
     Dates: start: 20120913

REACTIONS (1)
  - Increased upper airway secretion [Recovered/Resolved]
